FAERS Safety Report 7536160-3 (Version None)
Quarter: 2011Q2

REPORT INFORMATION
  Report Type: 
  Country: None (occurrence: None)
  Receive Date: 20110602
  Receipt Date: 20110520
  Transmission Date: 20111010
  Serious: Yes (Other)
  Sender: FDA-Public Use
  Company Number: 2011P1006693

PATIENT
  Sex: Male

DRUGS (1)
  1. DARAPRIM [Suspect]
     Indication: TOXOPLASMOSIS

REACTIONS (1)
  - BONE MARROW FAILURE [None]
